FAERS Safety Report 7024736-1 (Version None)
Quarter: 2010Q3

REPORT INFORMATION
  Report Type: 
  Country: None (occurrence: None)
  Receive Date: 20100929
  Receipt Date: 20100916
  Transmission Date: 20110219
  Serious: Yes (Death, Hospitalization)
  Sender: FDA-Public Use
  Company Number: A-CH2010-39986

PATIENT
  Age: 62 Year
  Sex: Male

DRUGS (1)
  1. TRACLEER [Suspect]
     Indication: SKIN ULCER
     Dosage: 62.5 MG, BID ORAL, 125 MG, BID, ORAL
     Route: 048

REACTIONS (5)
  - AORTIC BYPASS [None]
  - AORTIC VALVE REPLACEMENT [None]
  - CARDIAC OPERATION [None]
  - CORONARY ARTERY BYPASS [None]
  - LEG AMPUTATION [None]
